FAERS Safety Report 12782554 (Version 1)
Quarter: 2016Q3

REPORT INFORMATION
  Report Type: Spontaneous
  Country: US (occurrence: US)
  Receive Date: 20160926
  Receipt Date: 20160926
  Transmission Date: 20161109
  Serious: Yes (Hospitalization)
  Sender: FDA-Public Use
  Company Number: None

PATIENT
  Age: 67 Year
  Sex: Female
  Weight: 39.15 kg

DRUGS (2)
  1. ASTATINE [Concomitant]
  2. BACLOFEN. [Suspect]
     Active Substance: BACLOFEN
     Indication: NECK PAIN
     Dosage: 1 TABLET EVERY 4 HOURS ORAL
     Route: 048
     Dates: start: 20160920, end: 20160920

REACTIONS (2)
  - Heart rate decreased [None]
  - Loss of consciousness [None]

NARRATIVE: CASE EVENT DATE: 20160920
